FAERS Safety Report 4645080-3 (Version None)
Quarter: 2005Q2

REPORT INFORMATION
  Report Type: 
  Country: None (occurrence: None)
  Receive Date: 20050426
  Receipt Date: 20050411
  Transmission Date: 20051028
  Serious: Yes (Hospitalization)
  Sender: FDA-Public Use
  Company Number: PHHO2005SE05795

PATIENT
  Age: 56 Year
  Sex: Female

DRUGS (4)
  1. SANDIMMUNE [Suspect]
     Indication: TRANSPLANT
     Dosage: 200 MG/DAY
     Route: 048
     Dates: end: 20050123
  2. SANDIMMUNE [Suspect]
     Dosage: 150 MG/DAY
     Route: 048
     Dates: start: 20050124
  3. CANDESARTAN [Suspect]
     Dosage: 16 MG, QD
     Route: 048
     Dates: start: 20041129, end: 20050127
  4. HYDROCHLOROTHIAZIDE [Suspect]
     Dosage: 12.5 MG, QD
     Route: 048
     Dates: start: 20041129, end: 20050127

REACTIONS (1)
  - BLOOD CREATININE INCREASED [None]
